FAERS Safety Report 19095987 (Version 2)
Quarter: 2021Q2

REPORT INFORMATION
  Report Type: Report from Study
  Country: US (occurrence: US)
  Receive Date: 20210406
  Receipt Date: 20210409
  Transmission Date: 20210717
  Serious: No
  Sender: FDA-Public Use
  Company Number: NVSC2021US073710

PATIENT
  Sex: Male

DRUGS (1)
  1. COSENTYX [Suspect]
     Active Substance: SECUKINUMAB
     Indication: PRODUCT USED FOR UNKNOWN INDICATION
     Dosage: UNK
     Route: 065

REACTIONS (7)
  - Product contamination physical [Unknown]
  - Product storage error [Unknown]
  - Arthritis [Unknown]
  - Drug ineffective [Unknown]
  - Pain [Unknown]
  - Abdominal discomfort [Unknown]
  - Psoriasis [Unknown]
